FAERS Safety Report 4308991-4 (Version None)
Quarter: 2004Q1

REPORT INFORMATION
  Report Type: 
  Country: None (occurrence: None)
  Receive Date: 20040227
  Receipt Date: 20040213
  Transmission Date: 20041129
  Serious: Yes (Hospitalization)
  Sender: FDA-Public Use
  Company Number: 2004AP00676

PATIENT
  Age: 66 Year
  Sex: Female

DRUGS (1)
  1. IRESSA [Suspect]
     Indication: NON-SMALL CELL LUNG CANCER
     Dosage: 250 MG DAILY PO
     Route: 048
     Dates: start: 20040110, end: 20040203

REACTIONS (5)
  - CHILLS [None]
  - DRUG INEFFECTIVE [None]
  - ESCHERICHIA INFECTION [None]
  - PYREXIA [None]
  - VOMITING [None]
